FAERS Safety Report 7466021-X (Version None)
Quarter: 2011Q2

REPORT INFORMATION
  Report Type: 
  Country: None (occurrence: None)
  Receive Date: 20110509
  Receipt Date: 20100610
  Transmission Date: 20111010
  Serious: Yes (Hospitalization)
  Sender: FDA-Public Use
  Company Number: US-ALEXION-A201000559

PATIENT
  Sex: Female

DRUGS (12)
  1. ZYRTEC [Concomitant]
  2. SOLIRIS [Suspect]
     Indication: PAROXYSMAL NOCTURNAL HAEMOGLOBINURIA
     Dosage: 600 MG, UNK
     Route: 042
     Dates: start: 20080221, end: 20080313
  3. SOLIRIS [Suspect]
     Dosage: 900 MG, Q2WKS
     Route: 042
     Dates: start: 20080320
  4. TIMOLOL [Concomitant]
     Indication: GLAUCOMA
     Dosage: UNK
     Route: 031
  5. BONIVA [Concomitant]
     Indication: OSTEOPOROSIS
     Dosage: 1XMONTH
     Route: 048
  6. ASPIRIN [Concomitant]
  7. VITAMIN A [Concomitant]
  8. LISINOPRIL [Concomitant]
     Indication: BLOOD PRESSURE MANAGEMENT
     Dosage: 10 MG, QD
     Route: 048
  9. NORVASC [Concomitant]
     Indication: BLOOD PRESSURE MANAGEMENT
     Dosage: 5 MG, QD
     Route: 048
  10. GLUCOSAMINE [Concomitant]
  11. XALATAN [Concomitant]
     Indication: GLAUCOMA
     Dosage: UNK
     Route: 031
  12. CALCIUM [Concomitant]

REACTIONS (3)
  - WHITE BLOOD CELL COUNT DECREASED [None]
  - JOINT ARTHROPLASTY [None]
  - HAEMOGLOBIN DECREASED [None]
